FAERS Safety Report 23084099 (Version 1)
Quarter: 2023Q4

REPORT INFORMATION
  Report Type: Spontaneous
  Country: US (occurrence: US)
  Receive Date: 20231019
  Receipt Date: 20231019
  Transmission Date: 20240109
  Serious: Yes (Hospitalization)
  Sender: FDA-Public Use
  Company Number: US-MYLANLABS-2023M1108940

PATIENT
  Age: 66 Year
  Sex: Female

DRUGS (1)
  1. HYDRALAZINE [Suspect]
     Active Substance: HYDRALAZINE HYDROCHLORIDE
     Indication: Cardiac failure
     Dosage: UNK
     Route: 065

REACTIONS (3)
  - Lupus pleurisy [Recovered/Resolved]
  - Lupus-like syndrome [Recovered/Resolved]
  - Off label use [Unknown]
